FAERS Safety Report 10904068 (Version 1)
Quarter: 2015Q1

REPORT INFORMATION
  Report Type: Spontaneous
  Country: US (occurrence: None)
  Receive Date: 20150304
  Receipt Date: 20150304
  Transmission Date: 20150721
  Serious: No
  Sender: FDA-Public Use
  Company Number: None

PATIENT
  Age: 60 Year
  Sex: Female

DRUGS (1)
  1. HARVONI [Suspect]
     Active Substance: LEDIPASVIR\SOFOSBUVIR
     Route: 048
     Dates: start: 20150228

REACTIONS (5)
  - Fatigue [None]
  - Sleep disorder [None]
  - Abnormal dreams [None]
  - Mood altered [None]
  - Anxiety [None]

NARRATIVE: CASE EVENT DATE: 20150301
